FAERS Safety Report 8340835-6 (Version None)
Quarter: 2012Q2

REPORT INFORMATION
  Report Type: 
  Country: None (occurrence: None)
  Receive Date: 20120507
  Receipt Date: 20120503
  Transmission Date: 20120825
  Serious: Yes (Life-Threatening, Other)
  Sender: FDA-Public Use
  Company Number: TN-ABBOTT-12P-160-0930290-00

PATIENT
  Age: 5 Year
  Sex: Male

DRUGS (6)
  1. SUCCINYLCHOLINE CHLORIDE [Concomitant]
     Indication: INDUCTION OF ANAESTHESIA
     Route: 042
  2. FENTANYL CITRATE [Concomitant]
     Indication: ANAESTHESIA
     Route: 042
  3. AMOXICILLIN AND CLAVULANATE POTASSIUM [Concomitant]
     Indication: PRODUCT USED FOR UNKNOWN INDICATION
     Route: 042
  4. O2-N2O [Concomitant]
     Indication: ANAESTHESIA
  5. PROPOFOL [Concomitant]
     Indication: INDUCTION OF ANAESTHESIA
     Route: 042
  6. SEVOFLURANE [Suspect]
     Indication: ANAESTHESIA
     Route: 055

REACTIONS (2)
  - RHABDOMYOLYSIS [None]
  - HYPERTHERMIA MALIGNANT [None]
